FAERS Safety Report 7595352-8 (Version None)
Quarter: 2011Q3

REPORT INFORMATION
  Report Type: 
  Country: None (occurrence: None)
  Receive Date: 20110707
  Receipt Date: 20110630
  Transmission Date: 20111222
  Serious: Yes (Hospitalization, Other)
  Sender: FDA-Public Use
  Company Number: FR-PFIZER INC-2011145943

PATIENT
  Age: 73 Year
  Sex: Male

DRUGS (19)
  1. NEXIUM [Concomitant]
     Dosage: UNK
     Dates: start: 20110601, end: 20110603
  2. LASIX [Concomitant]
     Dosage: UNK
     Dates: start: 20110601, end: 20110601
  3. AMIODARONE [Concomitant]
     Dosage: UNK
     Dates: end: 20110603
  4. LERCANIDIPINE [Concomitant]
     Dosage: UNK
     Dates: end: 20110604
  5. LIPIODOL [Concomitant]
     Indication: HEPATIC NEOPLASM MALIGNANT
     Dosage: UNK
     Route: 013
     Dates: start: 20110531, end: 20110531
  6. PLAVIX [Concomitant]
     Dosage: UNK
     Dates: start: 20110602, end: 20110605
  7. AUGMENTIN '125' [Concomitant]
     Dosage: UNK
     Dates: start: 20110603, end: 20110605
  8. CEFTRIAXONE [Concomitant]
     Dosage: UNK
     Dates: start: 20110605, end: 20110605
  9. CLAFORAN [Concomitant]
     Dosage: UNK
     Dates: start: 20110531, end: 20110603
  10. ASPEGIC 325 [Concomitant]
     Dosage: UNK
     Dates: start: 20110601, end: 20110601
  11. ASPIRIN [Concomitant]
     Dosage: UNK
     Dates: end: 20110605
  12. NITRODERM [Concomitant]
     Dosage: UNK
     Dates: end: 20110605
  13. CEFTRIAXONE [Concomitant]
     Dosage: UNK
     Dates: start: 20110607, end: 20110611
  14. DOXORUBICIN HCL [Suspect]
     Indication: HEPATIC NEOPLASM MALIGNANT
     Dosage: 140 MG, UNK
     Route: 013
     Dates: start: 20110531, end: 20110531
  15. ZOCOR [Concomitant]
     Dosage: UNK
     Dates: end: 20110531
  16. PIPERACILLIN AND TAZOBACTAM [Concomitant]
     Dosage: UNK
     Dates: start: 20110605, end: 20110607
  17. ARIXTRA [Concomitant]
     Dosage: UNK
     Dates: start: 20110602, end: 20110603
  18. ATORVASTATIN CALCIUM [Concomitant]
     Dosage: UNK
     Dates: start: 20110601, end: 20110601
  19. LASIX [Concomitant]
     Dosage: UNK
     Dates: start: 20110605, end: 20110611

REACTIONS (4)
  - ACUTE PULMONARY OEDEMA [None]
  - NEUTROPENIA [None]
  - MYOCARDIAL ISCHAEMIA [None]
  - THROMBOCYTOPENIA [None]
